FAERS Safety Report 9216569 (Version 5)
Quarter: 2013Q3

REPORT INFORMATION
  Report Type: Spontaneous
  Country: US (occurrence: None)
  Receive Date: 20130403
  Receipt Date: 20130710
  Transmission Date: 20140515
  Serious: Yes (Hospitalization, Other)
  Sender: FDA-Public Use
  Company Number: 2012-002624

PATIENT
  Age: 58 Year
  Sex: Female
  Weight: 49.5 kg

DRUGS (19)
  1. ACTONEL [Suspect]
     Indication: OSTEOPOROSIS
     Route: 048
     Dates: start: 20091211, end: 201010
  2. ACTONEL [Suspect]
     Indication: OSTEOPOROSIS
     Route: 048
     Dates: start: 20020722, end: 200208
  3. ACTONEL [Suspect]
     Indication: OSTEOPOROSIS
     Route: 048
     Dates: start: 200208, end: 20020925
  4. FOSAMAX [Suspect]
     Indication: OSTEOPOROSIS
     Route: 048
     Dates: start: 20050701, end: 20091029
  5. FOSAMAX [Suspect]
     Indication: OSTEOPOROSIS PROPHYLAXIS
     Route: 048
     Dates: start: 20050701, end: 20091029
  6. ALENDRONATE [Suspect]
     Indication: OSTEOPOROSIS
     Dosage: DOSAGE / FREQUENCY UNKNOWN, ORAL
     Route: 048
  7. ALENDRONATE [Suspect]
     Indication: OSTEOPOROSIS PROPHYLAXIS
     Dosage: DOSAGE / FREQUENCY UNKNOWN, ORAL
     Route: 048
  8. PREMARIN (ESTROGENS CONJUGATED) [Concomitant]
  9. PLAQUENIL /00072602/ (HYDROXYCHLOROQUINE PHOSPHATE) [Concomitant]
  10. DELTASONE /00044701/ (PREDNISONE) [Concomitant]
  11. DOXYCYCLINE (DOXYCYCLINE) [Concomitant]
  12. CELEBREX (CELECOXIMB) [Concomitant]
  13. SKELAXIN  /00611501/ (METAXALONE) [Concomitant]
  14. SAVELLA (MILNACIPRAN HYDROCHLORIDE) [Concomitant]
  15. ARAVA (LEFLUNOMIDE) [Concomitant]
  16. NEURONTIN (GABAPENTIN) [Concomitant]
  17. ZOLOFT (SERTRALINE  HYDROCHLORIDE) [Concomitant]
  18. CALCIUM (CALCIUM) [Concomitant]
  19. VITAMIN D /00318591/ (COLECALCIFEROL) [Concomitant]

REACTIONS (24)
  - Fracture displacement [None]
  - Femur fracture [None]
  - Pathological fracture [None]
  - Osteolysis [None]
  - Bone disorder [None]
  - Bone pain [None]
  - Osteogenesis imperfecta [None]
  - Low turnover osteopathy [None]
  - Fall [None]
  - Stress fracture [None]
  - Gastrooesophageal reflux disease [None]
  - Pain in extremity [None]
  - Abdominal pain [None]
  - Tibia fracture [None]
  - Iron deficiency anaemia [None]
  - Neuropathy peripheral [None]
  - Seasonal allergy [None]
  - Asthma [None]
  - Hypothyroidism [None]
  - Blood calcium decreased [None]
  - Vitamin D decreased [None]
  - Anaemia postoperative [None]
  - Depression [None]
  - Cerebrovascular accident [None]
